FAERS Safety Report 5944778-4 (Version None)
Quarter: 2008Q4

REPORT INFORMATION
  Report Type: 
  Country: None (occurrence: None)
  Receive Date: 20081106
  Receipt Date: 20081106
  Transmission Date: 20090506
  Serious: Yes (Other)
  Sender: FDA-Public Use
  Company Number: None

PATIENT
  Age: 50 Year
  Sex: Male
  Weight: 108.8633 kg

DRUGS (1)
  1. MIRAPEX [Suspect]
     Indication: RESTLESS LEGS SYNDROME
     Dosage: 1.5 MG EVERY DAY
     Dates: start: 20080710, end: 20081105

REACTIONS (7)
  - ABNORMAL BEHAVIOUR [None]
  - ALCOHOL USE [None]
  - COMPULSIVE SHOPPING [None]
  - DEPENDENCE [None]
  - DRUG EFFECT DECREASED [None]
  - HIGH RISK SEXUAL BEHAVIOUR [None]
  - PERSONALITY CHANGE [None]
